FAERS Safety Report 7243625-0 (Version None)
Quarter: 2011Q1

REPORT INFORMATION
  Report Type: 
  Country: None (occurrence: None)
  Receive Date: 20110125
  Receipt Date: 20110117
  Transmission Date: 20110831
  Serious: Yes (Hospitalization, Other)
  Sender: FDA-Public Use
  Company Number: PHHY2010JP81929

PATIENT
  Sex: Male

DRUGS (14)
  1. AFINITOR [Suspect]
     Dosage: 10 MG, UNK
     Route: 048
     Dates: start: 20100902, end: 20100916
  2. FAMOTIDINE [Concomitant]
     Indication: METASTASES TO THORAX
     Dosage: 40 MG, UNK
     Route: 048
     Dates: start: 20090625
  3. SORAFENIB TOSILATE [Concomitant]
     Indication: RENAL CELL CARCINOMA
     Dosage: 800 MG, UNK
     Route: 048
     Dates: start: 20090723, end: 20100527
  4. CYTOTEC [Concomitant]
     Indication: METASTASES TO THORAX
     Dosage: 600 MG, UNK
     Route: 048
     Dates: start: 20090407
  5. OXYCONTIN [Concomitant]
     Indication: METASTASES TO THORAX
     Dosage: 40 MG, UNK
     Route: 048
     Dates: start: 20090408
  6. CELECOXIB [Suspect]
     Indication: METASTASES TO THORAX
     Dosage: 200 MG, DAILY
     Route: 048
     Dates: start: 20100527
  7. PURSENNID [Concomitant]
     Indication: METASTASES TO THORAX
     Dosage: 24 MG, UNK
     Route: 048
     Dates: start: 20100624
  8. SUNITINIB MALATE [Concomitant]
     Indication: RENAL CELL CARCINOMA
     Dosage: 50 MG, UNK
     Route: 048
     Dates: start: 20090302, end: 20090528
  9. AFINITOR [Suspect]
     Indication: RENAL CELL CARCINOMA
     Dosage: 10 MG, DAILY
     Route: 048
     Dates: start: 20100624, end: 20100713
  10. LAXOBERON [Concomitant]
     Indication: RENAL CELL CARCINOMA
     Dosage: 10 ML, UNK
     Route: 048
     Dates: start: 20100624
  11. ADALAT CC [Concomitant]
     Indication: METASTASES TO THORAX
     Dosage: 40 MG, UNK
     Route: 048
     Dates: start: 20091008
  12. NAUZELIN [Concomitant]
     Indication: METASTASES TO THORAX
     Dosage: 30 MG, UNK
     Route: 048
     Dates: start: 20100527
  13. FERROUS CITRATE [Concomitant]
     Indication: METASTASES TO THORAX
     Dosage: 100 MG, UNK
     Route: 048
     Dates: start: 20100408
  14. OXINORM [Concomitant]
     Indication: RENAL CELL CARCINOMA
     Dosage: 5 MG, UNK
     Route: 048
     Dates: start: 20090408

REACTIONS (2)
  - NEOPLASM MALIGNANT [None]
  - GASTROINTESTINAL PERFORATION [None]
